FAERS Safety Report 25455669 (Version 1)
Quarter: 2025Q2

REPORT INFORMATION
  Report Type: Spontaneous
  Country: GB (occurrence: GB)
  Receive Date: 20250619
  Receipt Date: 20250619
  Transmission Date: 20250716
  Serious: Yes (Hospitalization, Other)
  Sender: MSN LABORATORIES PRIVATE LIMITED
  Company Number: GB-MHRA-EMIS-7532-7c11e68c-9347-447b-b3d1-d44bfabc8d9d

PATIENT

DRUGS (4)
  1. ATORVASTATIN [Suspect]
     Active Substance: ATORVASTATIN
     Indication: Blood cholesterol
     Dosage: ONE TO BE TAKEN EACH DAY FOR CHOLESTEROL- BOOK A BLOOD TEST JUNE 2025
     Route: 065
     Dates: start: 20250305, end: 20250327
  2. LANSOPRAZOLE [Concomitant]
     Active Substance: LANSOPRAZOLE
     Indication: Pollakiuria
     Dosage: ONE OR TWO TO BE TAKEN EACH MORNING
     Route: 065
     Dates: start: 20250123
  3. ESTRADIOL [Concomitant]
     Active Substance: ESTRADIOL
     Indication: Product used for unknown indication
     Dosage: ONE PATCH TO BE APPLIED TWICE WEEKLY (MIRENA WILL EXPIRE IN DEC 2025)
     Route: 065
     Dates: start: 20250312
  4. FEXOFENADINE [Concomitant]
     Active Substance: FEXOFENADINE HYDROCHLORIDE
     Indication: Product used for unknown indication
     Dosage: ONE TO BE TAKEN EACH DAY
     Route: 065
     Dates: start: 20250317, end: 20250327

REACTIONS (8)
  - Acute kidney injury [Recovered/Resolved]
  - Drug reaction with eosinophilia and systemic symptoms [Unknown]
  - C-reactive protein increased [Recovered/Resolved]
  - Drug hypersensitivity [Unknown]
  - Urticaria [Unknown]
  - Diarrhoea [Unknown]
  - Pyrexia [Unknown]
  - Malaise [Unknown]

NARRATIVE: CASE EVENT DATE: 20250312
